FAERS Safety Report 20215766 (Version 1)
Quarter: 2021Q4

REPORT INFORMATION
  Report Type: Spontaneous
  Country: US (occurrence: US)
  Receive Date: 20211222
  Receipt Date: 20211222
  Transmission Date: 20220303
  Serious: Yes (Other)
  Sender: FDA-Public Use
  Company Number: US-AMGEN-USASP2021201586

PATIENT
  Sex: Male

DRUGS (1)
  1. CORLANOR [Suspect]
     Active Substance: IVABRADINE HYDROCHLORIDE
     Indication: Cardiac failure congestive
     Dosage: 2.5 MILLIGRAM, BID
     Route: 065
     Dates: start: 2021

REACTIONS (3)
  - Atrial fibrillation [Unknown]
  - Heart rate increased [Unknown]
  - Off label use [Unknown]
